FAERS Safety Report 12469903 (Version 1)
Quarter: 2016Q2

REPORT INFORMATION
  Report Type: Spontaneous
  Country: US (occurrence: US)
  Receive Date: 20160615
  Receipt Date: 20160615
  Transmission Date: 20160815
  Serious: No
  Sender: FDA-Public Use
  Company Number: US-BAYER-2016-112756

PATIENT
  Sex: Male

DRUGS (2)
  1. COPPERTONE WATER BABIES SPF 30 [Suspect]
     Active Substance: AVOBENZONE\HOMOSALATE\OCTISALATE\OCTOCRYLENE\OXYBENZONE
     Dosage: UNK
  2. CHILDREN CLARITIN ALLERGY [Suspect]
     Active Substance: LORATADINE
     Dosage: UNK

REACTIONS (6)
  - Sneezing [None]
  - Erythema [None]
  - Rash macular [None]
  - Drug ineffective [None]
  - Eye pruritus [None]
  - Lacrimation increased [None]
